FAERS Safety Report 14196005 (Version 2)
Quarter: 2020Q3

REPORT INFORMATION
  Report Type: Report from Study
  Country: US (occurrence: US)
  Receive Date: 20171116
  Receipt Date: 20171127
  Transmission Date: 20201105
  Serious: Yes (Other)
  Sender: FDA-Public Use
  Company Number: US-JNJFOC-20171107823

PATIENT
  Age: 67 Year
  Sex: Female
  Weight: 56.7 kg

DRUGS (19)
  1. VITAMIN D2 [Concomitant]
     Active Substance: ERGOCALCIFEROL
     Route: 048
  2. NEURONTIN [Concomitant]
     Active Substance: GABAPENTIN
     Route: 048
  3. TRABECTEDIN [Suspect]
     Active Substance: TRABECTEDIN
     Indication: OVARIAN CANCER METASTATIC
     Dosage: CYCLE 1 AND CYCLE 2
     Route: 042
     Dates: start: 20170403, end: 20170425
  4. TRABECTEDIN [Suspect]
     Active Substance: TRABECTEDIN
     Indication: OVARIAN CANCER METASTATIC
     Dosage: CYCLE 5 TO CYCLE 8
     Route: 042
     Dates: start: 20170719, end: 20170920
  5. PLD [Suspect]
     Active Substance: DOXORUBICIN HYDROCHLORIDE
     Indication: OVARIAN CANCER METASTATIC
     Dosage: CYCLE 3 AND CYCLE 4
     Route: 042
     Dates: start: 20170602, end: 20170622
  6. PLD [Suspect]
     Active Substance: DOXORUBICIN HYDROCHLORIDE
     Indication: OVARIAN CANCER METASTATIC
     Dosage: CYCLE 5 TO CYCLE 8
     Route: 042
     Dates: start: 20170719, end: 20170920
  7. XARELTO [Concomitant]
     Active Substance: RIVAROXABAN
     Route: 048
  8. COMPAZINE [Concomitant]
     Active Substance: PROCHLORPERAZINE MALEATE
     Route: 048
  9. PLD [Suspect]
     Active Substance: DOXORUBICIN HYDROCHLORIDE
     Indication: OVARIAN CANCER METASTATIC
     Dosage: CYCLE 1 AND CYCLE 2
     Route: 042
     Dates: start: 20170403, end: 20170425
  10. CYMBALTA [Concomitant]
     Active Substance: DULOXETINE HYDROCHLORIDE
     Route: 048
  11. MAGNESIUM [Concomitant]
     Active Substance: MAGNESIUM
     Route: 048
  12. K?DUR [Concomitant]
     Active Substance: POTASSIUM CHLORIDE
     Route: 048
  13. TRABECTEDIN [Suspect]
     Active Substance: TRABECTEDIN
     Indication: OVARIAN CANCER METASTATIC
     Dosage: CYCLE 3 AND CYCLE 4
     Route: 042
     Dates: start: 20170602, end: 20170622
  14. FUROSEMIDE. [Concomitant]
     Active Substance: FUROSEMIDE
     Route: 048
  15. DESYREL [Concomitant]
     Active Substance: TRAZODONE HYDROCHLORIDE
     Route: 048
  16. ZOFRAN [Concomitant]
     Active Substance: ONDANSETRON HYDROCHLORIDE
     Route: 048
  17. LEXAPRO [Concomitant]
     Active Substance: ESCITALOPRAM OXALATE
     Route: 048
  18. INDERAL [Concomitant]
     Active Substance: PROPRANOLOL HYDROCHLORIDE
     Route: 048
  19. NICORETTE [Concomitant]
     Active Substance: NICOTINE
     Indication: NICOTINE DEPENDENCE
     Route: 048

REACTIONS (1)
  - Myelodysplastic syndrome [Not Recovered/Not Resolved]

NARRATIVE: CASE EVENT DATE: 20171005
